APPROVED DRUG PRODUCT: DICLOFENAC SODIUM
Active Ingredient: DICLOFENAC SODIUM
Strength: 75MG
Dosage Form/Route: TABLET, DELAYED RELEASE;ORAL
Application: A077863 | Product #003 | TE Code: AB
Applicant: UNIQUE PHARMACEUTICAL LABORATORIES A DIV OF JB CHEMICALS AND PHARMACEUTICALS LTD
Approved: Jun 8, 2007 | RLD: No | RS: Yes | Type: RX